FAERS Safety Report 15644124 (Version 1)
Quarter: 2018Q4

REPORT INFORMATION
  Report Type: Spontaneous
  Country: JP (occurrence: JP)
  Receive Date: 20181121
  Receipt Date: 20181121
  Transmission Date: 20190205
  Serious: Yes (Hospitalization)
  Sender: FDA-Public Use
  Company Number: JP-EISAI MEDICAL RESEARCH-EC-2018-047870

PATIENT
  Age: 70 Year
  Sex: Male

DRUGS (1)
  1. FYCOMPA [Suspect]
     Active Substance: PERAMPANEL
     Indication: PARTIAL SEIZURES
     Route: 048

REACTIONS (1)
  - Agitation [Recovering/Resolving]
